FAERS Safety Report 10210500 (Version 1)
Quarter: 2014Q2

REPORT INFORMATION
  Report Type: Spontaneous
  Country: PL (occurrence: PL)
  Receive Date: 20140602
  Receipt Date: 20140602
  Transmission Date: 20141212
  Serious: Yes (Other)
  Sender: FDA-Public Use
  Company Number: PL-WATSON-2014-11250

PATIENT
  Age: 61 Year
  Sex: Female
  Weight: 106 kg

DRUGS (1)
  1. CARBOPLATIN ACTAVIS [Suspect]
     Indication: OVARIAN CANCER
     Dosage: 491, UNK
     Route: 042
     Dates: start: 20140211, end: 20140211

REACTIONS (3)
  - Dyspnoea [Recovered/Resolved]
  - Erythema [Recovered/Resolved]
  - Oropharyngeal pain [Recovered/Resolved]
